FAERS Safety Report 25766121 (Version 1)
Quarter: 2025Q3

REPORT INFORMATION
  Report Type: Spontaneous
  Country: US (occurrence: US)
  Receive Date: 20250905
  Receipt Date: 20250905
  Transmission Date: 20251020
  Serious: No
  Sender: DOMPE FARMACEUTICI
  Company Number: US-FARMAPROD-202408-2829

PATIENT
  Age: 85 Year
  Sex: Female
  Weight: 28.58 kg

DRUGS (1)
  1. OXERVATE [Suspect]
     Active Substance: CENEGERMIN-BKBJ
     Indication: Neurotrophic keratopathy
     Route: 047
     Dates: start: 20240805

REACTIONS (7)
  - Accidental exposure to product [Unknown]
  - Sneezing [Unknown]
  - Somnolence [Unknown]
  - Hypoaesthesia [Unknown]
  - Product dose omission issue [Unknown]
  - Eye pain [Not Recovered/Not Resolved]
  - Weight decreased [Unknown]

NARRATIVE: CASE EVENT DATE: 20240805
